FAERS Safety Report 6289130-X (Version None)
Quarter: 2009Q3

REPORT INFORMATION
  Report Type: 
  Country: None (occurrence: None)
  Receive Date: 20090729
  Receipt Date: 20090722
  Transmission Date: 20100115
  Serious: Yes (Other)
  Sender: FDA-Public Use
  Company Number: DE-GILEAD-2009-0023250

PATIENT
  Age: 53 Year
  Sex: Male

DRUGS (1)
  1. VIREAD [Suspect]
     Indication: HEPATITIS B VIRUS TEST

REACTIONS (1)
  - BLOOD CREATINE PHOSPHOKINASE INCREASED [None]
